FAERS Safety Report 5882963-0 (Version None)
Quarter: 2008Q3

REPORT INFORMATION
  Report Type: 
  Country: None (occurrence: None)
  Receive Date: 20080913
  Receipt Date: 20080822
  Transmission Date: 20090109
  Serious: No
  Sender: FDA-Public Use
  Company Number: US-ABBOTT-08P-163-0472139-00

PATIENT
  Sex: Female
  Weight: 59.02 kg

DRUGS (6)
  1. HUMIRA [Suspect]
     Indication: PSORIASIS
     Route: 058
     Dates: start: 20080601
  2. VICODIN [Concomitant]
     Indication: PAIN
     Dosage: 1 1/2 TAB (UNIT DOSE 7.5 MG
     Route: 048
     Dates: start: 20070101
  3. CYCLOBENZAPRINE HCL [Concomitant]
     Indication: DRUG USE FOR UNKNOWN INDICATION
     Route: 048
     Dates: start: 20070101
  4. MULTI-VITAMIN [Concomitant]
     Indication: DRUG USE FOR UNKNOWN INDICATION
     Route: 048
  5. BUPROPION HCL [Concomitant]
     Indication: ANXIETY
     Route: 048
     Dates: start: 20080501
  6. FLUOXETINE [Concomitant]
     Indication: ANXIETY
     Route: 048
     Dates: end: 20080401

REACTIONS (1)
  - DRUG INEFFECTIVE [None]
